FAERS Safety Report 5792240-4 (Version None)
Quarter: 2008Q2

REPORT INFORMATION
  Report Type: 
  Country: None (occurrence: None)
  Receive Date: 20080625
  Receipt Date: 20080326
  Transmission Date: 20081010
  Serious: No
  Sender: FDA-Public Use
  Company Number: US-WYE-H03311608

PATIENT
  Age: 51 Year
  Sex: Male
  Weight: 98.52 kg

DRUGS (1)
  1. TORISEL [Suspect]
     Indication: RENAL CELL CARCINOMA
     Dosage: 25 MG 1X PER 1 WK, INTRAVENOUS
     Route: 042
     Dates: start: 20080208

REACTIONS (3)
  - EYE SWELLING [None]
  - FATIGUE [None]
  - PRURITUS GENERALISED [None]
